FAERS Safety Report 8139063-9 (Version None)
Quarter: 2012Q1

REPORT INFORMATION
  Report Type: 
  Country: None (occurrence: None)
  Receive Date: 20120215
  Receipt Date: 20120213
  Transmission Date: 20120608
  Serious: Yes (Hospitalization)
  Sender: FDA-Public Use
  Company Number: US-PFIZER INC-2012039622

PATIENT
  Sex: Female
  Weight: 65.76 kg

DRUGS (3)
  1. LOPID [Suspect]
     Indication: BLOOD TRIGLYCERIDES ABNORMAL
     Dosage: 600 MG, 2X/DAY
     Route: 048
     Dates: start: 20110101, end: 20110101
  2. LIPITOR [Suspect]
     Indication: BLOOD CHOLESTEROL ABNORMAL
     Dosage: 80 MG, DAILY
     Route: 048
  3. BISOPROLOL FUMARATE AND HYDROCHLOROTHIAZIDE [Concomitant]
     Indication: HYPERTENSION
     Dosage: 5/6.2 MG, DAILY

REACTIONS (3)
  - TRANSIENT ISCHAEMIC ATTACK [None]
  - BLOOD TRIGLYCERIDES INCREASED [None]
  - HYPOAESTHESIA [None]
